FAERS Safety Report 11387287 (Version 1)
Quarter: 2015Q3

REPORT INFORMATION
  Report Type: Report from Study
  Country: AR (occurrence: AR)
  Receive Date: 20150817
  Receipt Date: 20150817
  Transmission Date: 20151125
  Serious: Yes (Other)
  Sender: FDA-Public Use
  Company Number: AR-EMD SERONO-8038300

PATIENT
  Sex: Female

DRUGS (4)
  1. REBIF [Suspect]
     Active Substance: INTERFERON BETA-1A
     Dates: start: 20130715, end: 201506
  2. REBIF [Suspect]
     Active Substance: INTERFERON BETA-1A
     Dates: start: 20150804
  3. REBIF [Suspect]
     Active Substance: INTERFERON BETA-1A
     Dates: start: 20130308, end: 20130715
  4. REBIF [Suspect]
     Active Substance: INTERFERON BETA-1A
     Indication: PRODUCT USED FOR UNKNOWN INDICATION
     Dosage: MANUAL INJECTION
     Dates: start: 20060321, end: 20130308

REACTIONS (2)
  - Delirium [Recovered/Resolved]
  - Pyrexia [Recovered/Resolved]
